FAERS Safety Report 9454388 (Version 1)
Quarter: 2013Q3

REPORT INFORMATION
  Report Type: Spontaneous
  Country: US (occurrence: US)
  Receive Date: 20130812
  Receipt Date: 20130812
  Transmission Date: 20140515
  Serious: Yes (Other)
  Sender: FDA-Public Use
  Company Number: US-ELI_LILLY_AND_COMPANY-US201308000955

PATIENT
  Sex: Female

DRUGS (2)
  1. FORTEO [Suspect]
     Indication: ARTHRITIS
     Dosage: UNK
     Dates: start: 1998, end: 2000
  2. FORTEO [Suspect]

REACTIONS (7)
  - Cerebrovascular accident [Unknown]
  - Spinal fracture [Unknown]
  - Bone density decreased [Unknown]
  - Incorrect product storage [Unknown]
  - Off label use [Unknown]
  - Cough [Unknown]
  - Incorrect drug administration duration [Unknown]
